FAERS Safety Report 20225955 (Version 2)
Quarter: 2022Q1

REPORT INFORMATION
  Report Type: Spontaneous
  Country: DE (occurrence: DE)
  Receive Date: 20211224
  Receipt Date: 20220216
  Transmission Date: 20220423
  Serious: Yes (Hospitalization)
  Sender: FDA-Public Use
  Company Number: DE-SAMSUNG BIOEPIS-SB-2021-26283

PATIENT
  Age: 74 Year
  Sex: Female
  Weight: 52 kg

DRUGS (8)
  1. PERTUZUMAB [Suspect]
     Active Substance: PERTUZUMAB
     Indication: Breast cancer
     Dosage: 3?MOST RECENT DOSE PRIOR TO AE 29/OCT/2021
     Route: 042
     Dates: start: 20210901, end: 20211029
  2. ONTRUZANT [Suspect]
     Active Substance: TRASTUZUMAB-DTTB
     Indication: Breast cancer
     Dosage: 3?MOST RECENT DOSE PRIOR TO AE 29/OCT/2021
     Route: 042
     Dates: start: 20210901, end: 20211029
  3. CARBOPLATIN [Suspect]
     Active Substance: CARBOPLATIN
     Indication: Breast cancer
     Dosage: 5 AUC 3?MOST RECENT DOSE PRIOR TO AE 29/OCT/2021
     Route: 042
     Dates: start: 20210901, end: 20211029
  4. CARBOPLATIN [Suspect]
     Active Substance: CARBOPLATIN
     Indication: Breast cancer
  5. PACLITAXEL [Suspect]
     Active Substance: PACLITAXEL
     Indication: Breast cancer
     Dosage: MOST RECENT DOSE PRIOR TO AE 29/OCT/2021
     Route: 042
     Dates: start: 20210901, end: 20211029
  6. PACLITAXEL [Suspect]
     Active Substance: PACLITAXEL
     Indication: Breast cancer
  7. SPIRIVA [Concomitant]
     Active Substance: TIOTROPIUM BROMIDE MONOHYDRATE
     Indication: Bronchitis chronic
     Route: 055
     Dates: start: 20210830
  8. VITAMIN D3 [Concomitant]
     Active Substance: CHOLECALCIFEROL
     Indication: Supportive care
     Dosage: DOSE: 1000IE
     Route: 048
     Dates: start: 20210830

REACTIONS (4)
  - Diarrhoea [Recovered/Resolved]
  - Pneumonia [Recovered/Resolved]
  - Mucosal inflammation [Not Recovered/Not Resolved]
  - Stomatitis [Not Recovered/Not Resolved]

NARRATIVE: CASE EVENT DATE: 20211029
